FAERS Safety Report 24055039 (Version 2)
Quarter: 2025Q2

REPORT INFORMATION
  Report Type: Report from Study
  Country: US (occurrence: US)
  Receive Date: 20240705
  Receipt Date: 20250613
  Transmission Date: 20250716
  Serious: Yes (Other)
  Sender: ABBVIE
  Company Number: US-ABBVIE-5824988

PATIENT
  Sex: Female

DRUGS (2)
  1. CREON [Suspect]
     Active Substance: PANCRELIPASE AMYLASE\PANCRELIPASE LIPASE\PANCRELIPASE PROTEASE
     Indication: Pancreatic failure
     Dosage: DELAYED RELEASE CAPSULE 100 CAP
     Route: 048
     Dates: start: 202307
  2. CREON [Suspect]
     Active Substance: PANCRELIPASE AMYLASE\PANCRELIPASE LIPASE\PANCRELIPASE PROTEASE
     Indication: Pancreatic failure
     Route: 048

REACTIONS (10)
  - Autoimmune disorder [Unknown]
  - Pancreatic failure [Unknown]
  - Asthma [Unknown]
  - Cardiac disorder [Unknown]
  - Laryngeal dyskinesia [Unknown]
  - Chronic kidney disease [Unknown]
  - Gastroenteritis viral [Unknown]
  - Dehydration [Unknown]
  - Heart rate decreased [Unknown]
  - Gastrooesophageal reflux disease [Unknown]
